FAERS Safety Report 6409933-8 (Version None)
Quarter: 2009Q4

REPORT INFORMATION
  Report Type: 
  Country: None (occurrence: None)
  Receive Date: 20091022
  Receipt Date: 20091014
  Transmission Date: 20100525
  Serious: Yes (Hospitalization)
  Sender: FDA-Public Use
  Company Number: TR-ASTRAZENECA-2009SE20314

PATIENT
  Age: 63 Year
  Sex: Female
  Weight: 71 kg

DRUGS (3)
  1. HYPERBARIC BUPIVACAINE [Suspect]
     Indication: ANALGESIC THERAPY
     Route: 039
  2. BUPIVACAINE M [Suspect]
     Indication: PAIN MANAGEMENT
     Route: 008
  3. FENTANYL-100 [Concomitant]

REACTIONS (2)
  - ANAESTHETIC COMPLICATION [None]
  - ARTHRALGIA [None]
